FAERS Safety Report 8862520 (Version 1)
Quarter: 2012Q4

REPORT INFORMATION
  Report Type: 
  Country: US (occurrence: US)
  Receive Date: 20121026
  Receipt Date: 20121026
  Transmission Date: 20130627
  Serious: Yes (Other)
  Sender: FDA-Public Use
  Company Number: US-009507513-1210USA009699

PATIENT
  Age: 40 Year
  Sex: Female

DRUGS (1)
  1. ISENTRESS [Suspect]

REACTIONS (2)
  - Gastric bypass [Unknown]
  - Drug dose omission [Unknown]
